FAERS Safety Report 20474834 (Version 1)
Quarter: 2022Q1

REPORT INFORMATION
  Report Type: Spontaneous
  Country: US (occurrence: None)
  Receive Date: 20220214
  Receipt Date: 20220214
  Transmission Date: 20220424
  Serious: Yes (unspecified)
  Sender: FDA-Public Use
  Company Number: None

PATIENT
  Age: 70 Year
  Sex: Female
  Weight: 65.25 kg

DRUGS (16)
  1. PRASUGREL [Suspect]
     Active Substance: PRASUGREL
     Indication: Anticoagulant therapy
     Dosage: OTHER QUANTITY : 1 TABLET(S);?FREQUENCY : DAILY;?
     Route: 048
     Dates: start: 20211029, end: 20211117
  2. SYNTHROID [Concomitant]
     Active Substance: LEVOTHYROXINE SODIUM
  3. XELJANZ XR [Concomitant]
     Active Substance: TOFACITINIB CITRATE
  4. LISINOPRIL [Concomitant]
     Active Substance: LISINOPRIL
  5. TOPROL XL [Concomitant]
     Active Substance: METOPROLOL SUCCINATE
  6. BRILINTA [Concomitant]
     Active Substance: TICAGRELOR
  7. FOLIC ACID [Concomitant]
     Active Substance: FOLIC ACID
  8. DESONIDE [Concomitant]
     Active Substance: DESONIDE
  9. VITAMIN D3 [Concomitant]
     Active Substance: CHOLECALCIFEROL
  10. VITAMIN B12 [Concomitant]
     Active Substance: CYANOCOBALAMIN
  11. HERBALS\TURMERIC [Concomitant]
     Active Substance: HERBALS\TURMERIC
  12. PROBIOTICS NOS [Concomitant]
     Active Substance: PROBIOTICS NOS
  13. ASPIRIN [Concomitant]
     Active Substance: ASPIRIN
  14. TYLENOL [Concomitant]
     Active Substance: ACETAMINOPHEN
  15. COENZYME Q10 [Concomitant]
     Active Substance: DIETARY SUPPLEMENT\UBIDECARENONE
  16. PEPCID [Concomitant]
     Active Substance: FAMOTIDINE

REACTIONS (9)
  - Abdominal distension [None]
  - Abdominal pain upper [None]
  - Dyspepsia [None]
  - Blood pressure increased [None]
  - Hiatus hernia [None]
  - Gastritis [None]
  - Oesophageal pain [None]
  - Hypophagia [None]
  - Therapy cessation [None]

NARRATIVE: CASE EVENT DATE: 20211103
